FAERS Safety Report 23198732 (Version 1)
Quarter: 2023Q4

REPORT INFORMATION
  Report Type: Spontaneous
  Country: CN (occurrence: CN)
  Receive Date: 20231117
  Receipt Date: 20231117
  Transmission Date: 20240110
  Serious: Yes (Other)
  Sender: FDA-Public Use
  Company Number: CN-PFIZER INC-PV202300186451

PATIENT
  Age: 67 Year
  Sex: Male

DRUGS (2)
  1. CYTARABINE [Suspect]
     Active Substance: CYTARABINE
     Indication: White blood cell count increased
     Dosage: 20.000 MG, 1X/DAY
     Route: 058
     Dates: start: 20231022, end: 20231102
  2. CYTARABINE [Suspect]
     Active Substance: CYTARABINE
     Indication: Acute myeloid leukaemia

REACTIONS (4)
  - Gastrointestinal disorder [Recovering/Resolving]
  - Constipation [Recovering/Resolving]
  - Intestinal obstruction [Recovering/Resolving]
  - Nausea [Recovering/Resolving]

NARRATIVE: CASE EVENT DATE: 20231023
